FAERS Safety Report 17074971 (Version 1)
Quarter: 2019Q4

REPORT INFORMATION
  Report Type: Spontaneous
  Country: US (occurrence: US)
  Receive Date: 20191026
  Receipt Date: 20191026
  Transmission Date: 20200122
  Serious: Yes (Hospitalization)
  Sender: FDA-Public Use
  Company Number: None

PATIENT
  Age: 19 Year
  Sex: Male
  Weight: 70 kg

DRUGS (2)
  1. PREDNISONE. [Suspect]
     Active Substance: PREDNISONE
     Dates: end: 20190920
  2. ONCASPAR [Suspect]
     Active Substance: PEGASPARGASE
     Dates: end: 20190831

REACTIONS (8)
  - Erythema [None]
  - Peripheral swelling [None]
  - Infusion site discharge [None]
  - Rash [None]
  - Skin candida [None]
  - Infusion site haemorrhage [None]
  - Deep vein thrombosis [None]
  - Bacteraemia [None]

NARRATIVE: CASE EVENT DATE: 20190921
